FAERS Safety Report 9525732 (Version 4)
Quarter: 2014Q3

REPORT INFORMATION
  Report Type: Spontaneous
  Country: US (occurrence: US)
  Receive Date: 20130915
  Receipt Date: 20140918
  Transmission Date: 20150326
  Serious: No
  Sender: FDA-Public Use
  Company Number: US-009507513-1309USA002343

PATIENT
  Sex: Female

DRUGS (6)
  1. NAPROXEN. [Concomitant]
     Active Substance: NAPROXEN
  2. ATIVAN [Concomitant]
     Active Substance: LORAZEPAM
  3. REBETOL [Suspect]
     Active Substance: RIBAVIRIN
     Route: 048
  4. ZOLOFT [Concomitant]
     Active Substance: SERTRALINE HYDROCHLORIDE
  5. PEGINTRON [Suspect]
     Active Substance: PEGINTERFERON ALFA-2B
     Indication: HEPATITIS C
     Dosage: KIT 120/0.5 UNITS, 120MCG/0.5ML, QW
     Route: 058
     Dates: start: 20130701
  6. PROAMATINE [Concomitant]
     Active Substance: MIDODRINE HYDROCHLORIDE

REACTIONS (22)
  - Cough [Recovering/Resolving]
  - Tooth disorder [Not Recovered/Not Resolved]
  - Injection site rash [Recovering/Resolving]
  - Alopecia [Not Recovered/Not Resolved]
  - Weight decreased [Not Recovered/Not Resolved]
  - Increased tendency to bruise [Not Recovered/Not Resolved]
  - Vomiting [Recovering/Resolving]
  - Change of bowel habit [Not Recovered/Not Resolved]
  - Muscle disorder [Not Recovered/Not Resolved]
  - Dry mouth [Not Recovered/Not Resolved]
  - Joint instability [Not Recovered/Not Resolved]
  - Infection [Not Recovered/Not Resolved]
  - Visual impairment [Not Recovered/Not Resolved]
  - Pruritus [Not Recovered/Not Resolved]
  - Arthropathy [Not Recovered/Not Resolved]
  - Scar [Unknown]
  - Scab [Unknown]
  - Musculoskeletal disorder [Not Recovered/Not Resolved]
  - Dysgeusia [Not Recovered/Not Resolved]
  - Headache [Not Recovered/Not Resolved]
  - Rash [Not Recovered/Not Resolved]
  - Influenza like illness [Not Recovered/Not Resolved]

NARRATIVE: CASE EVENT DATE: 2013
